FAERS Safety Report 4823433-8 (Version None)
Quarter: 2005Q4

REPORT INFORMATION
  Report Type: 
  Country: None (occurrence: None)
  Receive Date: 20051107
  Receipt Date: 20051021
  Transmission Date: 20060501
  Serious: Yes (Other)
  Sender: FDA-Public Use
  Company Number: GB-2005-017714

PATIENT
  Sex: Female

DRUGS (1)
  1. FLUDARABINE PHOSPHATE [Suspect]
     Indication: LYMPHOMA

REACTIONS (1)
  - AUTOIMMUNE NEUTROPENIA [None]
